FAERS Safety Report 11444185 (Version 2)
Quarter: 2015Q3

REPORT INFORMATION
  Report Type: Report from Study
  Country: US (occurrence: US)
  Receive Date: 20150901
  Receipt Date: 20150917
  Transmission Date: 20151125
  Serious: No
  Sender: FDA-Public Use
  Company Number: US-AMGEN-USASP2015088022

PATIENT
  Age: 69 Year
  Sex: Female

DRUGS (3)
  1. ENBREL [Suspect]
     Active Substance: ETANERCEPT
     Indication: ANKYLOSING SPONDYLITIS
     Dosage: 50 MG, UNK
     Route: 065
     Dates: start: 20080201, end: 2014
  2. ENBREL [Suspect]
     Active Substance: ETANERCEPT
     Indication: PUSTULAR PSORIASIS
     Dosage: 50 MG, UNK
     Route: 065
     Dates: start: 20150825
  3. ENBREL [Suspect]
     Active Substance: ETANERCEPT
     Indication: PSORIATIC ARTHROPATHY
     Dosage: 50 UNK, UNK
     Route: 065

REACTIONS (12)
  - Headache [Unknown]
  - Cough [Unknown]
  - Respiratory disorder [Unknown]
  - Asthenia [Not Recovered/Not Resolved]
  - Hypersensitivity [Unknown]
  - Hypertension [Unknown]
  - Malaise [Unknown]
  - Dizziness [Unknown]
  - Vision blurred [Not Recovered/Not Resolved]
  - Tremor [Unknown]
  - Feeling abnormal [Unknown]
  - Adverse drug reaction [Unknown]

NARRATIVE: CASE EVENT DATE: 20150825
